FAERS Safety Report 9270514 (Version 1)
Quarter: 2013Q2

REPORT INFORMATION
  Report Type: Spontaneous
  Country: BR (occurrence: BR)
  Receive Date: 20130503
  Receipt Date: 20130503
  Transmission Date: 20140414
  Serious: Yes (Hospitalization)
  Sender: FDA-Public Use
  Company Number: BR-ASTRAZENECA-2013SE29121

PATIENT
  Age: 5 Month
  Sex: Male

DRUGS (4)
  1. LOSEC MUPS [Suspect]
     Indication: GASTROOESOPHAGEAL REFLUX DISEASE
     Route: 048
     Dates: start: 201302, end: 201304
  2. LOSEC MUPS [Suspect]
     Indication: GASTROOESOPHAGEAL REFLUX DISEASE
     Dosage: UNKNOWN DOSE, TWO TIMES A DAY
     Route: 048
     Dates: start: 201304, end: 20130423
  3. LOSEC MUPS [Suspect]
     Indication: GASTROOESOPHAGEAL REFLUX DISEASE
     Route: 048
  4. RANITIDINE [Concomitant]
     Indication: GASTROOESOPHAGEAL REFLUX DISEASE

REACTIONS (5)
  - Syncope [Recovered/Resolved]
  - Haematochezia [Recovering/Resolving]
  - Abdominal pain upper [Recovered/Resolved]
  - Intentional drug misuse [Unknown]
  - Off label use [Not Recovered/Not Resolved]
